FAERS Safety Report 7381407-X (Version None)
Quarter: 2011Q1

REPORT INFORMATION
  Report Type: 
  Country: None (occurrence: None)
  Receive Date: 20110321
  Receipt Date: 20110308
  Transmission Date: 20110831
  Serious: Yes (Hospitalization)
  Sender: FDA-Public Use
  Company Number: OMPQ-NO-1103S-0259

PATIENT
  Age: 76 Year
  Sex: Male

DRUGS (10)
  1. DILTIAZEM HYDROCHLORIDE [Concomitant]
  2. BENIDIPINE HYDROCHLORIDE (CONIEL) [Concomitant]
  3. MEXILETINE HYDROCHLORIDE (MEXITIL) [Concomitant]
  4. LIPITOR [Concomitant]
  5. NICORANDIL (NIKORANMART) [Concomitant]
  6. OMNIPAQUE 70 [Suspect]
     Indication: AORTIC ANEURYSM
     Dosage: 1 ML, SINGLE DOSE,
     Dates: start: 20110128, end: 20110128
  7. ACETYLSALICYLIC ACID (BAYASPIRIN) [Concomitant]
  8. TICLOPIDINE HCL [Concomitant]
  9. DIOVAN [Concomitant]
  10. MECOBALAMIN (VANCOMIN) [Concomitant]

REACTIONS (3)
  - DRUG HYPERSENSITIVITY [None]
  - ACUTE CORONARY SYNDROME [None]
  - ANAPHYLACTOID SHOCK [None]
